FAERS Safety Report 19702084 (Version 1)
Quarter: 2021Q3

REPORT INFORMATION
  Report Type: Spontaneous
  Country: BR (occurrence: BR)
  Receive Date: 20210813
  Receipt Date: 20210813
  Transmission Date: 20211014
  Serious: Yes (Other)
  Sender: FDA-Public Use
  Company Number: NVSC2021BR180669

PATIENT
  Sex: Female

DRUGS (2)
  1. TEGRETOL [Suspect]
     Active Substance: CARBAMAZEPINE
     Dosage: 12 ML, Q12H
     Route: 065
  2. TEGRETOL [Suspect]
     Active Substance: CARBAMAZEPINE
     Indication: PRODUCT USED FOR UNKNOWN INDICATION
     Dosage: 20 MG/ML
     Route: 065
     Dates: start: 2018

REACTIONS (4)
  - Seizure [Recovered/Resolved]
  - Fatigue [Unknown]
  - Petit mal epilepsy [Recovered/Resolved]
  - Syncope [Recovered/Resolved]
